FAERS Safety Report 12200617 (Version 3)
Quarter: 2016Q3

REPORT INFORMATION
  Report Type: Spontaneous
  Country: JP (occurrence: JP)
  Receive Date: 20160322
  Receipt Date: 20160712
  Transmission Date: 20161109
  Serious: Yes (Hospitalization)
  Sender: FDA-Public Use
  Company Number: JP-BIOCRYST PHARMACEUTICALS, INC.-2016BCR00121

PATIENT
  Age: 80 Year
  Sex: Female

DRUGS (16)
  1. PITAVASTATIN CA [Concomitant]
     Active Substance: PITAVASTATIN CALCIUM
     Dosage: 2 MG, 1X/DAY
     Dates: start: 20160212
  2. SODIUM FERROUS CITRATE [Concomitant]
     Active Substance: SODIUM FERROUS CITRATE
     Dosage: 50 MG, 1X/DAY
     Dates: start: 20160212
  3. DIART [Concomitant]
     Active Substance: AZOSEMIDE
     Dosage: 60 MG, 1X/DAY
     Dates: start: 20160212
  4. TRAZODONE [Concomitant]
     Active Substance: TRAZODONE HYDROCHLORIDE
     Dosage: 12.5 MG, 1X/DAY
     Dates: start: 20160212
  5. SINGULAIR [Concomitant]
     Active Substance: MONTELUKAST SODIUM
     Dosage: 10 MG, 1X/DAY
     Dates: start: 20160212
  6. METOLATE [Suspect]
     Active Substance: METHOTREXATE
     Dosage: 4 MG, UNK
     Route: 048
  7. LANSOPRAZOLE. [Concomitant]
     Active Substance: LANSOPRAZOLE
     Dosage: 15 MG, 1X/DAY
     Dates: start: 20160212
  8. GLACTIV [Concomitant]
     Active Substance: SITAGLIPTIN
     Dosage: 60 MG, 1X/DAY
     Dates: start: 20160212
  9. ROHYPNOL [Concomitant]
     Active Substance: FLUNITRAZEPAM
     Dosage: 1 MG, 1X/DAY
     Dates: start: 20160212
  10. RAPIACTA [Suspect]
     Active Substance: PERAMIVIR
     Indication: INFLUENZA
     Dosage: 300 MG, ONCE
     Route: 042
     Dates: start: 20160229, end: 20160229
  11. THEOPHYLLINE [Concomitant]
     Active Substance: THEOPHYLLINE ANHYDROUS
     Dosage: 200 MG, 1X/DAY
     Dates: start: 20160212
  12. SPIRONOLACTONE. [Concomitant]
     Active Substance: SPIRONOLACTONE
     Dosage: 12.5 MG, 1X/DAY
     Dates: start: 20160212
  13. ALVESCO [Concomitant]
     Active Substance: CICLESONIDE
     Dosage: 200 ?G, 1X/DAY
     Dates: start: 20160212
  14. TULOBUTEROL [Concomitant]
     Active Substance: TULOBUTEROL
     Dosage: 2 MG, 1X/DAY
     Dates: start: 20160212
  15. KLARICID [Concomitant]
     Active Substance: CLARITHROMYCIN
     Indication: INFLUENZA
     Dosage: 400 MG, 1X/DAY
     Route: 048
     Dates: start: 20160229, end: 20160304
  16. NIFEDIPINE. [Concomitant]
     Active Substance: NIFEDIPINE
     Dosage: 40 MG, 1X/DAY
     Dates: start: 20160212

REACTIONS (2)
  - Aplastic anaemia [Recovered/Resolved]
  - Liver disorder [Recovered/Resolved]

NARRATIVE: CASE EVENT DATE: 20160304
